FAERS Safety Report 14689869 (Version 1)
Quarter: 2018Q1

REPORT INFORMATION
  Report Type: Spontaneous
  Country: US (occurrence: US)
  Receive Date: 20180328
  Receipt Date: 20180328
  Transmission Date: 20180509
  Serious: No
  Sender: FDA-Public Use
  Company Number: US-SMITH AND NEPHEW, INC-2017SMT00514

PATIENT
  Age: 31 Year
  Sex: Female
  Weight: 45.35 kg

DRUGS (1)
  1. COLLAGENASE SANTYL [Suspect]
     Active Substance: COLLAGENASE CLOSTRIDIUM HISTOLYTICUM
     Indication: NECROTISING FASCIITIS
     Dosage: UNK, 1X/DAY
     Route: 061
     Dates: start: 201612, end: 20170808

REACTIONS (3)
  - Rash erythematous [Not Recovered/Not Resolved]
  - Drug administration error [Recovered/Resolved]
  - Skin irritation [Not Recovered/Not Resolved]

NARRATIVE: CASE EVENT DATE: 201612
